FAERS Safety Report 9373764 (Version 1)
Quarter: 2013Q2

REPORT INFORMATION
  Report Type: Spontaneous
  Country: IT (occurrence: IT)
  Receive Date: 20130628
  Receipt Date: 20130628
  Transmission Date: 20140414
  Serious: Yes (Hospitalization)
  Sender: FDA-Public Use
  Company Number: PHHY2013IT064988

PATIENT
  Age: 83 Year
  Sex: Male

DRUGS (8)
  1. ZOLPIDEM [Suspect]
     Dosage: 15 DF, ONCE/SINGLE
     Route: 048
     Dates: start: 20130610, end: 20130610
  2. XANAX [Suspect]
     Dosage: 10 DF, ONCE/SINGLE
     Route: 048
     Dates: start: 20130610, end: 20130610
  3. DEBRIDAT [Concomitant]
     Dates: start: 20130607, end: 20130610
  4. SPIRIVA [Concomitant]
  5. ALIFUS [Concomitant]
  6. VENTOLIN [Concomitant]
  7. REMERON [Concomitant]
     Dosage: 15 MG
  8. CITICOLINE [Concomitant]
     Dates: start: 20130607, end: 20130610

REACTIONS (4)
  - Intentional self-injury [Recovering/Resolving]
  - Face injury [Recovering/Resolving]
  - Wound [Recovering/Resolving]
  - Sopor [Recovering/Resolving]
